FAERS Safety Report 9507103 (Version 2)
Quarter: 2013Q4

REPORT INFORMATION
  Report Type: Spontaneous
  Country: GB (occurrence: None)
  Receive Date: 20130904
  Receipt Date: 20131025
  Transmission Date: 20140711
  Serious: Yes (Hospitalization)
  Sender: FDA-Public Use
  Company Number: SYM-2013-10270

PATIENT
  Age: 64 Year
  Sex: Male

DRUGS (14)
  1. 5-FU [Suspect]
     Indication: COLORECTAL CANCER METASTATIC
     Route: 040
     Dates: start: 20130417, end: 20130417
  2. IRINOTECAN [Suspect]
     Indication: COLORECTAL CANCER METASTATIC
     Route: 042
     Dates: start: 20130417, end: 20130417
  3. LEUCOVORIN (FOLINIC ACID) (SOLUTION FOR INFUSION) (FOLINIC ACID) [Suspect]
     Indication: COLORECTAL CANCER METASTATIC
     Route: 042
     Dates: start: 20130417, end: 20130417
  4. AFLIBERCEPT [Suspect]
     Indication: COLORECTAL CANCER METASTATIC
     Route: 042
     Dates: start: 20130417, end: 20130417
  5. LOPERAMIDE (LOPERAMIDE) (LOPERAMIDE) [Concomitant]
  6. CALCIUM CHANNEL BLOCKERS (CALCIUM CHANNEL BLOCKERS) [Concomitant]
  7. ANTIBIOTICS (ANTIBIOTICS) [Concomitant]
  8. CITALOPRAM (CITALOPRAM) [Concomitant]
  9. ROSUVASTATIN (ROSUVASTATIN) [Concomitant]
  10. ANALGESICS (ANALGESICS) [Concomitant]
  11. GLICLAZIDE (GLICLAZIDE) [Concomitant]
  12. METFORMIN (METFORMIN) [Concomitant]
  13. BENDROFLUAZIDE (BENDROFLUMETHIAZIDE) (BENDROFLUMETHIAZIDE) [Concomitant]
  14. FLUTICASONE/SALMETEROL (FLUTICASONE W/SALMETEROL) (SALMETEROL, FLUTICASONE) [Concomitant]

REACTIONS (4)
  - Fistula [None]
  - Wound infection [None]
  - Post procedural complication [None]
  - Hypokalaemia [None]
